FAERS Safety Report 18427200 (Version 1)
Quarter: 2020Q4

REPORT INFORMATION
  Report Type: Spontaneous
  Country: US (occurrence: US)
  Receive Date: 20201026
  Receipt Date: 20201026
  Transmission Date: 20210114
  Serious: No
  Sender: FDA-Public Use
  Company Number: US-PFIZER INC-2020405576

PATIENT
  Age: 67 Year
  Sex: Female

DRUGS (8)
  1. LYRICA [Suspect]
     Active Substance: PREGABALIN
     Indication: FIBROMYALGIA
     Dosage: 150 MG, 3X/DAY
     Route: 048
  2. VITAMIN D3 [Concomitant]
     Active Substance: CHOLECALCIFEROL
     Dosage: UNK
  3. LYRICA [Suspect]
     Active Substance: PREGABALIN
     Indication: NEUROPATHY PERIPHERAL
     Dosage: 150 MG, 4X/DAY
     Route: 048
  4. PARACETAMOL [Concomitant]
     Active Substance: ACETAMINOPHEN
     Dosage: UNK
  5. ADVIL [IBUPROFEN] [Concomitant]
     Active Substance: IBUPROFEN
     Dosage: UNK
  6. CLARITIN [Concomitant]
     Active Substance: LORATADINE
     Dosage: UNK
  7. LYRICA [Suspect]
     Active Substance: PREGABALIN
     Dosage: 150 MG, 1X/DAY
     Route: 048
  8. LYRICA [Suspect]
     Active Substance: PREGABALIN
     Dosage: 150 MG, ALTERNATE DAY
     Route: 048

REACTIONS (19)
  - Parotid gland enlargement [Recovering/Resolving]
  - Pyrexia [Unknown]
  - Joint swelling [Unknown]
  - Swelling face [Unknown]
  - Blood pressure abnormal [Unknown]
  - Fluid retention [Unknown]
  - Intentional product misuse [Unknown]
  - Feeling abnormal [Unknown]
  - Lymphadenopathy [Recovering/Resolving]
  - Feeling hot [Unknown]
  - Dyspnoea [Recovering/Resolving]
  - Disease progression [Unknown]
  - Weight increased [Unknown]
  - Asthma [Unknown]
  - Peripheral swelling [Recovering/Resolving]
  - Withdrawal syndrome [Unknown]
  - Increased appetite [Unknown]
  - Throat irritation [Unknown]
  - Chills [Unknown]
